FAERS Safety Report 14196461 (Version 1)
Quarter: 2017Q4

REPORT INFORMATION
  Report Type: Spontaneous
  Country: US (occurrence: US)
  Receive Date: 20171116
  Receipt Date: 20171116
  Transmission Date: 20180321
  Serious: No
  Sender: FDA-Public Use
  Company Number: US-NOVOPROD-525867

PATIENT
  Age: 58 Year
  Sex: Female

DRUGS (2)
  1. NOVOLOG MIX 70/30 [Suspect]
     Active Substance: INSULIN ASPART
     Indication: TYPE 2 DIABETES MELLITUS
     Dosage: 20U IN THE AM + 30U AT NIGHT
     Route: 058
     Dates: start: 2016
  2. VICTOZA [Concomitant]
     Active Substance: LIRAGLUTIDE
     Indication: TYPE 2 DIABETES MELLITUS
     Dosage: 0.6 MG, QD
     Route: 058
     Dates: start: 2016

REACTIONS (7)
  - Nail disorder [Recovered/Resolved]
  - Onychoclasis [Unknown]
  - Gastroenteritis viral [Recovered/Resolved]
  - Blood glucose decreased [Unknown]
  - Influenza [Recovered/Resolved]
  - Insomnia [Unknown]
  - Glycosylated haemoglobin increased [Recovered/Resolved]

NARRATIVE: CASE EVENT DATE: 2016
